FAERS Safety Report 8989408 (Version 1)
Quarter: 2012Q4

REPORT INFORMATION
  Report Type: Report from Study
  Country: DE (occurrence: DE)
  Receive Date: 20121227
  Receipt Date: 20121227
  Transmission Date: 20130627
  Serious: Yes (Hospitalization, Other)
  Sender: FDA-Public Use
  Company Number: DE-ROCHE-765038

PATIENT
  Age: 38 Year
  Sex: Male
  Weight: 105 kg

DRUGS (5)
  1. TOCILIZUMAB [Suspect]
     Indication: JUVENILE ARTHRITIS
     Route: 042
     Dates: start: 20100701, end: 20100929
  2. MTX [Concomitant]
     Indication: JUVENILE ARTHRITIS
     Route: 048
  3. PREDNISOLON [Concomitant]
     Indication: JUVENILE ARTHRITIS
     Route: 048
  4. TRAMADOL [Concomitant]
     Indication: JUVENILE ARTHRITIS
     Route: 048
  5. ARCOXIA [Concomitant]
     Indication: JUVENILE ARTHRITIS
     Dosage: IF REQUIRED
     Route: 048

REACTIONS (2)
  - Erysipelas [Recovered/Resolved]
  - Acne [Unknown]
